FAERS Safety Report 16264584 (Version 3)
Quarter: 2019Q2

REPORT INFORMATION
  Report Type: Spontaneous
  Country: US (occurrence: US)
  Receive Date: 20190502
  Receipt Date: 20190614
  Transmission Date: 20190711
  Serious: No
  Sender: FDA-Public Use
  Company Number: US-PFIZER INC-2019181366

PATIENT
  Age: 57 Year
  Sex: Female
  Weight: 63.5 kg

DRUGS (1)
  1. PREMPRO [Suspect]
     Active Substance: ESTROGENS, CONJUGATED\MEDROXYPROGESTERONE ACETATE
     Indication: HORMONE LEVEL ABNORMAL
     Dosage: 1 DF, 1X/DAY (ESTROGENS CONJUGATED: 0.625MG, MEDROXYPROGESTERONE ACETATE: 2.5MG, AT NIGHT)
     Route: 048
     Dates: start: 201904

REACTIONS (7)
  - Dizziness [Unknown]
  - Chills [Unknown]
  - Feeling hot [Unknown]
  - Weight decreased [Unknown]
  - Hot flush [Unknown]
  - Malaise [Not Recovered/Not Resolved]
  - Nausea [Unknown]

NARRATIVE: CASE EVENT DATE: 20190414
